FAERS Safety Report 18774206 (Version 1)
Quarter: 2021Q1

REPORT INFORMATION
  Report Type: Spontaneous
  Country: US (occurrence: US)
  Receive Date: 20210122
  Receipt Date: 20210122
  Transmission Date: 20210419
  Serious: Yes (Death)
  Sender: FDA-Public Use
  Company Number: None

PATIENT
  Age: 84 Year
  Sex: Male

DRUGS (9)
  1. OMEPRAZOLE 20MG CAPSULES [Concomitant]
     Active Substance: OMEPRAZOLE
  2. LABETALOL 200MG TABLETS [Concomitant]
     Active Substance: LABETALOL HYDROCHLORIDE
  3. LOKELMA [Suspect]
     Active Substance: SODIUM ZIRCONIUM CYCLOSILICATE
     Indication: HYPERKALAEMIA
     Route: 048
     Dates: start: 20200421, end: 20210101
  4. LIPITOR 10MG TABLETS [Concomitant]
  5. SODIUM BICARBONATE 325MG TABLETS [Concomitant]
  6. NIFEDIPINE 30MG ER TABLETS [Concomitant]
  7. TYLENOL 325MG GEL CAPSULES [Concomitant]
  8. OXCARBAMAZEPINE 300MG TABLETS [Concomitant]
  9. LOSARTAN 100MG TABLETS [Concomitant]
     Active Substance: LOSARTAN

REACTIONS (1)
  - Death [None]

NARRATIVE: CASE EVENT DATE: 20210101
